FAERS Safety Report 21005547 (Version 1)
Quarter: 2022Q2

REPORT INFORMATION
  Report Type: Spontaneous
  Country: PT (occurrence: PT)
  Receive Date: 20220624
  Receipt Date: 20220624
  Transmission Date: 20220721
  Serious: Yes (Life-Threatening, Hospitalization, Other)
  Sender: FDA-Public Use
  Company Number: PT-009507513-2206PRT006935

PATIENT
  Age: 72 Year
  Sex: Female

DRUGS (1)
  1. PEMBROLIZUMAB [Suspect]
     Active Substance: PEMBROLIZUMAB
     Indication: Lung adenocarcinoma
     Dosage: UNK, CYCLICAL

REACTIONS (4)
  - Diabetic ketoacidosis [Unknown]
  - Immune-mediated thyroiditis [Unknown]
  - Immune-mediated neurological disorder [Unknown]
  - Immune-mediated hypothyroidism [Unknown]
